FAERS Safety Report 25865935 (Version 2)
Quarter: 2025Q4

REPORT INFORMATION
  Report Type: Spontaneous
  Country: US (occurrence: US)
  Receive Date: 20250930
  Receipt Date: 20251003
  Transmission Date: 20260118
  Serious: No
  Sender: BAYER HEALTHCARE PHARMACEUTICALS INC.
  Company Number: US-BAYER-2025A126282

PATIENT
  Age: 25 Year
  Sex: Female

DRUGS (2)
  1. VITRAKVI [Suspect]
     Active Substance: LAROTRECTINIB
     Indication: Sarcoma
     Dosage: 100 MG, BID
     Route: 048
     Dates: start: 20241023
  2. VITRAKVI [Suspect]
     Active Substance: LAROTRECTINIB
     Indication: NTRK gene fusion cancer

REACTIONS (3)
  - Depression [Recovering/Resolving]
  - Pruritus [Recovered/Resolved]
  - Rash [None]
